FAERS Safety Report 7248204-7 (Version None)
Quarter: 2011Q1

REPORT INFORMATION
  Report Type: 
  Country: None (occurrence: None)
  Receive Date: 20110127
  Receipt Date: 20100908
  Transmission Date: 20110831
  Serious: Yes (Other)
  Sender: FDA-Public Use
  Company Number: US-BAYER-201019770NA

PATIENT
  Sex: Female
  Weight: 77.098 kg

DRUGS (8)
  1. UNCODEABLE ^UNCLASSIFIABLE^ [Concomitant]
     Dosage: UNK
     Dates: start: 20071215
  2. ZOFRAN [Concomitant]
     Dosage: UNK
     Dates: start: 20071215
  3. YAZ [Suspect]
     Indication: CONTRACEPTION
     Dosage: 1 UNK, UNK
     Route: 048
     Dates: start: 20030101, end: 20060101
  4. HERBAL PREPARATION [Concomitant]
  5. YASMIN [Suspect]
     Indication: CONTRACEPTION
     Dosage: 1 DF, UNK
     Route: 048
     Dates: start: 20030101, end: 20060101
  6. IBUPROFEN [Concomitant]
     Dosage: UNK
  7. MULTI-VITAMINS [Concomitant]
  8. ASCORBIC ACID [Concomitant]

REACTIONS (3)
  - CHOLECYSTITIS CHRONIC [None]
  - CHOLELITHIASIS [None]
  - CHOLECYSTITIS ACUTE [None]
